FAERS Safety Report 14459787 (Version 1)
Quarter: 2018Q1

REPORT INFORMATION
  Report Type: Spontaneous
  Country: US (occurrence: US)
  Receive Date: 20180130
  Receipt Date: 20180130
  Transmission Date: 20180509
  Serious: Yes (Life-Threatening, Hospitalization)
  Sender: FDA-Public Use
  Company Number: US-JNJFOC-20180121352

PATIENT
  Age: 16 Year
  Sex: Female

DRUGS (1)
  1. APAP [Suspect]
     Active Substance: ACETAMINOPHEN
     Indication: PRODUCT USED FOR UNKNOWN INDICATION
     Dosage: APPROX. 2700 MG/KG
     Route: 048

REACTIONS (8)
  - Hypotension [Unknown]
  - Metabolic acidosis [Recovering/Resolving]
  - Hypothermia [Unknown]
  - Blood bilirubin increased [Unknown]
  - International normalised ratio increased [Recovering/Resolving]
  - Intentional overdose [Unknown]
  - Depressed level of consciousness [Unknown]
  - Alanine aminotransferase increased [Recovering/Resolving]
